FAERS Safety Report 6389688-6 (Version None)
Quarter: 2009Q4

REPORT INFORMATION
  Report Type: 
  Country: None (occurrence: None)
  Receive Date: 20091006
  Receipt Date: 20090930
  Transmission Date: 20100525
  Serious: Yes (Other)
  Sender: FDA-Public Use
  Company Number: FR-BRISTOL-MYERS SQUIBB COMPANY-14802185

PATIENT
  Age: 51 Year
  Sex: Male

DRUGS (4)
  1. HYDREA [Suspect]
     Indication: THROMBOCYTOPENIA
     Dates: start: 20080501
  2. PREVISCAN [Concomitant]
  3. INIPOMP [Concomitant]
  4. ORACILLINE [Concomitant]

REACTIONS (1)
  - HYPERTHYROIDISM [None]
